FAERS Safety Report 21458555 (Version 1)
Quarter: 2022Q4

REPORT INFORMATION
  Report Type: Spontaneous
  Country: US (occurrence: None)
  Receive Date: 20221013
  Receipt Date: 20221013
  Transmission Date: 20230113
  Serious: Yes (Disabling, Other)
  Sender: FDA-Public Use
  Company Number: None

PATIENT
  Age: 69 Year
  Sex: Female
  Weight: 49.5 kg

DRUGS (1)
  1. IBANDRONATE SODIUM [Suspect]
     Active Substance: IBANDRONATE SODIUM
     Indication: Osteoporosis
     Dosage: OTHER QUANTITY : 1 TABLET(S);?OTHER FREQUENCY : 1 MONTHLY;?
     Route: 048
     Dates: start: 20221003

REACTIONS (2)
  - Influenza like illness [None]
  - Arthralgia [None]

NARRATIVE: CASE EVENT DATE: 20221003
